FAERS Safety Report 17214680 (Version 2)
Quarter: 2020Q1

REPORT INFORMATION
  Report Type: Report from Study
  Country: US (occurrence: US)
  Receive Date: 20191230
  Receipt Date: 20200221
  Transmission Date: 20200409
  Serious: No
  Sender: FDA-Public Use
  Company Number: NVSC2019US081984

PATIENT
  Sex: Male

DRUGS (2)
  1. COSENTYX [Suspect]
     Active Substance: SECUKINUMAB
     Indication: PSORIATIC ARTHROPATHY
     Route: 058
  2. COSENTYX [Suspect]
     Active Substance: SECUKINUMAB
     Indication: PRODUCT USED FOR UNKNOWN INDICATION
     Dosage: 150 MG (BENEATH THE SKIN, USUALLY VIA INJECTION)
     Route: 058

REACTIONS (4)
  - Bone pain [Unknown]
  - Product dose omission [Unknown]
  - Psoriasis [Recovering/Resolving]
  - Skin exfoliation [Unknown]
